FAERS Safety Report 8446015-8 (Version None)
Quarter: 2012Q2

REPORT INFORMATION
  Report Type: 
  Country: None (occurrence: None)
  Receive Date: 20120618
  Receipt Date: 20120607
  Transmission Date: 20120825
  Serious: Yes (Other)
  Sender: FDA-Public Use
  Company Number: US-ASTRAZENECA-2011SE36702

PATIENT
  Age: 832 Month
  Sex: Female

DRUGS (8)
  1. MOTRIN [Concomitant]
  2. APIDRA [Concomitant]
  3. NEXIUM [Suspect]
     Route: 048
  4. ASPIRIN [Concomitant]
  5. IBUPROFEN (ADVIL) [Concomitant]
  6. NAPROXEN (ALEVE) [Concomitant]
  7. LANTUS [Concomitant]
     Dosage: 100 UNITS/ML, 7X3ML/PEN, TWO TIMES DAILY UP TO 100 UNITS PER DAY
  8. AMITRIPTY [Concomitant]

REACTIONS (6)
  - INSULIN-REQUIRING TYPE 2 DIABETES MELLITUS [None]
  - HYPERTENSION [None]
  - ASTHMA [None]
  - FIBROMYALGIA [None]
  - ARTHRITIS [None]
  - CEREBROVASCULAR ACCIDENT [None]
